FAERS Safety Report 21008085 (Version 1)
Quarter: 2022Q2

REPORT INFORMATION
  Report Type: Spontaneous
  Country: IR (occurrence: IR)
  Receive Date: 20220627
  Receipt Date: 20220627
  Transmission Date: 20220721
  Serious: Yes (Hospitalization, Other)
  Sender: FDA-Public Use
  Company Number: IR-VALIDUS PHARMACEUTICALS LLC-IR-VDP-2022-015594

PATIENT

DRUGS (3)
  1. CEFOTAXIME SODIUM [Suspect]
     Active Substance: CEFOTAXIME SODIUM
     Indication: Product used for unknown indication
     Dosage: 120 MG, BID
     Route: 042
  2. GENTAMICIN SULFATE [Suspect]
     Active Substance: GENTAMICIN SULFATE
     Indication: Product used for unknown indication
     Dosage: 4.5 MG, BID
     Route: 042
  3. AMPICILLIN [Suspect]
     Active Substance: AMPICILLIN
     Indication: Product used for unknown indication
     Dosage: 100 MG, BID
     Route: 042

REACTIONS (2)
  - Administration site extravasation [Recovered/Resolved]
  - Skin injury [Recovered/Resolved]
